FAERS Safety Report 9493078 (Version 2)
Quarter: 2013Q3

REPORT INFORMATION
  Report Type: Report from Study
  Country: GB (occurrence: GB)
  Receive Date: 20130902
  Receipt Date: 20130925
  Transmission Date: 20140515
  Serious: Yes (Other)
  Sender: FDA-Public Use
  Company Number: GB-ROCHE-1268784

PATIENT
  Sex: Female

DRUGS (10)
  1. RANIBIZUMAB [Suspect]
     Indication: PRODUCT USED FOR UNKNOWN INDICATION
     Route: 050
     Dates: start: 20090622
  2. RANIBIZUMAB [Suspect]
     Route: 050
     Dates: start: 20120613
  3. DILTIAZEM [Concomitant]
     Indication: HYPERTENSION
     Route: 065
     Dates: start: 20060101
  4. DILTIAZEM [Concomitant]
     Route: 065
     Dates: start: 20120613
  5. ASPIRIN [Concomitant]
     Route: 065
     Dates: start: 20000101
  6. ASPIRIN [Concomitant]
     Route: 065
     Dates: start: 20120613
  7. GLYCERYL TRINITRATE [Concomitant]
     Indication: ANGINA PECTORIS
     Route: 065
     Dates: start: 20000101
  8. GLYCERYL TRINITRATE [Concomitant]
     Route: 065
     Dates: start: 20120613
  9. ATORVASTATIN [Concomitant]
     Indication: HYPERLIPIDAEMIA
     Route: 065
     Dates: start: 20050101
  10. ATORVASTATIN [Concomitant]
     Route: 065
     Dates: start: 20120613

REACTIONS (2)
  - Myocardial infarction [Recovered/Resolved]
  - Basal cell carcinoma [Recovered/Resolved]
